FAERS Safety Report 5406242-0 (Version None)
Quarter: 2007Q3

REPORT INFORMATION
  Report Type: 
  Country: None (occurrence: None)
  Receive Date: 20070802
  Receipt Date: 20070802
  Transmission Date: 20080115
  Serious: Yes (Hospitalization)
  Sender: FDA-Public Use
  Company Number: None

PATIENT
  Sex: Male
  Weight: 85 kg

DRUGS (9)
  1. CYTARABINE [Suspect]
     Dosage: 3900 MG
  2. DEXAMETHASONE 0.5MG TAB [Suspect]
     Dosage: 95 MG
  3. ETOPOSIDE [Suspect]
     Dosage: 308 MG
  4. IFOSFAMIDE [Suspect]
     Dosage: 7720 MG
  5. LEUCOVORIN CALCIUM [Suspect]
     Dosage: 108 MG
  6. MESNA [Suspect]
     Dosage: 4246 MG
  7. METHOTREXATE [Suspect]
     Dosage: 2621 MG
  8. RITUXIMAB (MOAB C2B8 ANTI CD20, CHIMERIC) [Suspect]
     Dosage: 724 MG
  9. VINCRISTINE SULFATE [Suspect]
     Dosage: 2 MG

REACTIONS (3)
  - HEADACHE [None]
  - NAUSEA [None]
  - VOMITING [None]
